FAERS Safety Report 5953452-X (Version None)
Quarter: 2008Q4

REPORT INFORMATION
  Report Type: 
  Country: None (occurrence: None)
  Receive Date: 20081114
  Receipt Date: 20081014
  Transmission Date: 20090506
  Serious: No
  Sender: FDA-Public Use
  Company Number: US-BAYER-200836056NA

PATIENT
  Age: 34 Year
  Sex: Female
  Weight: 71 kg

DRUGS (1)
  1. MIRENA [Suspect]
     Indication: CONTRACEPTION
     Route: 015
     Dates: start: 20080829, end: 20081008

REACTIONS (6)
  - ALOPECIA [None]
  - DEPRESSED MOOD [None]
  - DIZZINESS [None]
  - MIGRAINE [None]
  - VAGINAL HAEMORRHAGE [None]
  - WEIGHT INCREASED [None]
